FAERS Safety Report 10683640 (Version 1)
Quarter: 2014Q4

REPORT INFORMATION
  Report Type: Report from Study
  Country: US (occurrence: US)
  Receive Date: 20141230
  Receipt Date: 20141230
  Transmission Date: 20150529
  Serious: Yes (Other)
  Sender: FDA-Public Use
  Company Number: US-EXELIXIS-CABO-14005056

PATIENT
  Sex: Female

DRUGS (1)
  1. CABOZANTINIB [Suspect]
     Active Substance: CABOZANTINIB
     Indication: SKIN CANCER
     Dosage: 100 MG, QD
     Route: 048
     Dates: start: 20141209, end: 20141210

REACTIONS (3)
  - Haemorrhage [Unknown]
  - Off label use [Unknown]
  - Paralysis [Unknown]
